FAERS Safety Report 25796864 (Version 1)
Quarter: 2025Q3

REPORT INFORMATION
  Report Type: Spontaneous
  Country: US (occurrence: US)
  Receive Date: 20250912
  Receipt Date: 20250912
  Transmission Date: 20251020
  Serious: No
  Sender: SANOFI AVENTIS
  Company Number: US-SA-2025SA271938

PATIENT
  Sex: Female
  Weight: 96.36 kg

DRUGS (21)
  1. DUPIXENT [Suspect]
     Active Substance: DUPILUMAB
     Indication: Dermatitis atopic
     Dosage: 300 MG, QOW
     Route: 058
  2. ARNICA FLOWER [Concomitant]
  3. TIZANIDINE HYDROCHLORIDE [Concomitant]
     Active Substance: TIZANIDINE HYDROCHLORIDE
  4. VENLAFAXINE HCL [Concomitant]
     Active Substance: VENLAFAXINE HYDROCHLORIDE
  5. NEMLUVIO [Concomitant]
     Active Substance: NEMOLIZUMAB-ILTO
  6. REFRESH TEARS [Concomitant]
     Active Substance: CARBOXYMETHYLCELLULOSE SODIUM
  7. DARAGEN [Concomitant]
  8. TRULANCE [Concomitant]
     Active Substance: PLECANATIDE
  9. ZYRTEC [Concomitant]
     Active Substance: CETIRIZINE HYDROCHLORIDE
  10. BIOTIN [Concomitant]
     Active Substance: BIOTIN
  11. VITAMIN D3 [Concomitant]
     Active Substance: CHOLECALCIFEROL
  12. VITAMIN C [Concomitant]
     Active Substance: ASCORBIC ACID
  13. VALTREX [Concomitant]
     Active Substance: VALACYCLOVIR HYDROCHLORIDE
  14. GABAPENTIN [Concomitant]
     Active Substance: GABAPENTIN
  15. OMEPRAZOLE [Concomitant]
     Active Substance: OMEPRAZOLE
  16. DICLOFENAC SODIUM [Concomitant]
     Active Substance: DICLOFENAC SODIUM
  17. LEVOTHYROXINE SODIUM [Concomitant]
     Active Substance: LEVOTHYROXINE SODIUM
  18. TRAMADOL HCL [Concomitant]
     Active Substance: TRAMADOL HYDROCHLORIDE
  19. RUTIN [RUTOSIDE] [Concomitant]
  20. VITAMINS NOS [Concomitant]
     Active Substance: VITAMINS
  21. PRAVASTATIN SODIUM [Concomitant]
     Active Substance: PRAVASTATIN SODIUM

REACTIONS (1)
  - Thyroid cyst [Not Recovered/Not Resolved]
